FAERS Safety Report 7035132-5 (Version None)
Quarter: 2010Q4

REPORT INFORMATION
  Report Type: 
  Country: None (occurrence: None)
  Receive Date: 20101008
  Receipt Date: 20101001
  Transmission Date: 20110411
  Serious: Yes (Hospitalization)
  Sender: FDA-Public Use
  Company Number: CHPA2010US15564

PATIENT
  Age: 82 Year
  Sex: Female
  Weight: 102.4 kg

DRUGS (2)
  1. ASCRIPTIN ENTERIC REG STRENGTH TABLETS (NCH) [Suspect]
     Indication: ARTHRITIS
     Dosage: 6  TABLETS PER DAY
     Route: 048
     Dates: end: 20100101
  2. ASCRIPTIN ENTERIC REG STRENGTH TABLETS (NCH) [Suspect]
     Dosage: 8 TABLETS PER DAY
     Route: 048

REACTIONS (6)
  - GAIT DISTURBANCE [None]
  - INCORRECT DOSE ADMINISTERED [None]
  - INTENTIONAL DRUG MISUSE [None]
  - THERAPEUTIC RESPONSE UNEXPECTED [None]
  - THROMBOSIS [None]
  - URTICARIA [None]
